FAERS Safety Report 6033771-1 (Version None)
Quarter: 2009Q1

REPORT INFORMATION
  Report Type: 
  Country: None (occurrence: None)
  Receive Date: 20090112
  Receipt Date: 20090105
  Transmission Date: 20090719
  Serious: Yes (Disabling, Other)
  Sender: FDA-Public Use
  Company Number: US-RANBAXY-2008US-19343

PATIENT
  Sex: Female

DRUGS (1)
  1. VERAPAMIL [Suspect]
     Indication: ARRHYTHMIA
     Dosage: UNK, UNK
     Route: 065

REACTIONS (1)
  - VISUAL FIELD DEFECT [None]
